FAERS Safety Report 25550064 (Version 1)
Quarter: 2025Q3

REPORT INFORMATION
  Report Type: Spontaneous
  Country: US (occurrence: US)
  Receive Date: 20250714
  Receipt Date: 20250714
  Transmission Date: 20251021
  Serious: Yes (Other)
  Sender: GLENMARK
  Company Number: US-MLMSERVICE-20250626-PI556957-00306-1

PATIENT
  Age: 50 Year
  Sex: Female

DRUGS (2)
  1. TACROLIMUS [Suspect]
     Active Substance: TACROLIMUS
     Indication: Immunosuppressant drug therapy
     Route: 065
     Dates: end: 2024
  2. PREDNISONE [Suspect]
     Active Substance: PREDNISONE
     Indication: Immunosuppressant drug therapy
     Dosage: 10 MILLIGRAM, QD
     Route: 065
     Dates: end: 2024

REACTIONS (3)
  - Squamous cell carcinoma [Recovered/Resolved]
  - Anogenital dysplasia [Recovered/Resolved]
  - Bowen^s disease [Recovered/Resolved]

NARRATIVE: CASE EVENT DATE: 20240101
